FAERS Safety Report 24558522 (Version 1)
Quarter: 2024Q4

REPORT INFORMATION
  Report Type: Spontaneous
  Country: CN (occurrence: CN)
  Receive Date: 20241029
  Receipt Date: 20241029
  Transmission Date: 20250115
  Serious: Yes (Hospitalization)
  Sender: JOHNSON AND JOHNSON
  Company Number: CN-BAYER-2024A152283

PATIENT
  Age: 83 Year
  Sex: Male

DRUGS (3)
  1. XARELTO [Suspect]
     Active Substance: RIVAROXABAN
     Indication: Anticoagulant therapy
     Dosage: 15 MG, QD
     Route: 048
     Dates: start: 20241003, end: 20241008
  2. XARELTO [Suspect]
     Active Substance: RIVAROXABAN
     Indication: Thrombosis prophylaxis
     Route: 048
  3. ETORICOXIB [Concomitant]
     Active Substance: ETORICOXIB
     Indication: Analgesic therapy
     Dosage: 60 MG, QD
     Route: 048
     Dates: start: 20241007, end: 20241007

REACTIONS (6)
  - Coagulopathy [Recovering/Resolving]
  - Haemoglobin decreased [Recovering/Resolving]
  - Occult blood positive [Unknown]
  - Skin mass [Unknown]
  - Incorrect dose administered [Unknown]
  - Product prescribing issue [Unknown]

NARRATIVE: CASE EVENT DATE: 20241003
